FAERS Safety Report 7270675-0 (Version None)
Quarter: 2011Q1

REPORT INFORMATION
  Report Type: 
  Country: None (occurrence: None)
  Receive Date: 20110202
  Receipt Date: 20110202
  Transmission Date: 20110831
  Serious: Yes (Hospitalization, Disabling, Congenital Anomaly)
  Sender: FDA-Public Use
  Company Number: B0627362A

PATIENT
  Weight: 3.1 kg

DRUGS (5)
  1. KALETRA [Suspect]
     Route: 064
  2. COMBIVIR [Suspect]
     Indication: HIV INFECTION
     Dosage: 2U PER DAY
     Route: 064
     Dates: start: 20040301, end: 20040101
  3. FERROUS SULFATE TAB [Concomitant]
     Route: 048
  4. LUSTRAL [Concomitant]
     Route: 048
  5. ASPIRIN [Concomitant]
     Dosage: 75MG PER DAY
     Route: 048
     Dates: start: 20010601, end: 20040101

REACTIONS (1)
  - TALIPES [None]
